FAERS Safety Report 4432095-3 (Version None)
Quarter: 2004Q3

REPORT INFORMATION
  Report Type: 
  Country: None (occurrence: None)
  Receive Date: 20040819
  Receipt Date: 20040812
  Transmission Date: 20050211
  Serious: Yes (Other)
  Sender: FDA-Public Use
  Company Number: S04-USA-04958-01

PATIENT
  Age: 47 Year
  Sex: Male

DRUGS (4)
  1. LEXAPRO [Suspect]
     Indication: DEPRESSION
     Dosage: 10 MG QD PO
     Route: 048
     Dates: start: 20040808
  2. INSULIN [Concomitant]
  3. PERCOCET [Concomitant]
  4. TOPAMAX [Concomitant]

REACTIONS (4)
  - CONDITION AGGRAVATED [None]
  - HYPOGLYCAEMIA [None]
  - LOSS OF CONSCIOUSNESS [None]
  - VISION BLURRED [None]
